FAERS Safety Report 15948253 (Version 2)
Quarter: 2019Q1

REPORT INFORMATION
  Report Type: Not Available
  Country: US (occurrence: US)
  Receive Date: 20190211
  Receipt Date: 20190308
  Transmission Date: 20190417
  Serious: Yes (Hospitalization)
  Sender: FDA-Public Use
  Company Number: US-NEUROCRINE BIOSCIENCES INC.-2019NBI00327

PATIENT
  Sex: Female

DRUGS (13)
  1. FINACEA [Concomitant]
     Active Substance: AZELAIC ACID
  2. IBUPROFEN. [Concomitant]
     Active Substance: IBUPROFEN
  3. INGREZZA [Suspect]
     Active Substance: VALBENAZINE
     Indication: TARDIVE DYSKINESIA
     Route: 048
     Dates: start: 20171121, end: 20171128
  4. TUMS [Concomitant]
     Active Substance: CALCIUM CARBONATE
  5. ELIQUIS [Concomitant]
     Active Substance: APIXABAN
  6. ATORVASTATIN [Concomitant]
     Active Substance: ATORVASTATIN
  7. OMEPRAZOLE. [Concomitant]
     Active Substance: OMEPRAZOLE
  8. CLOBETASOL [Concomitant]
     Active Substance: CLOBETASOL
  9. INGREZZA [Suspect]
     Active Substance: VALBENAZINE
     Route: 048
     Dates: start: 20171129
  10. METOPROLOL. [Concomitant]
     Active Substance: METOPROLOL
  11. QUETIAPINE. [Concomitant]
     Active Substance: QUETIAPINE
  12. MIRTAZAPINE. [Concomitant]
     Active Substance: MIRTAZAPINE
  13. EXCEDRIN [Concomitant]
     Active Substance: ACETAMINOPHEN\ASPIRIN\CAFFEINE
     Indication: MIGRAINE

REACTIONS (3)
  - Cerebrovascular accident [Unknown]
  - Atrial fibrillation [Recovered/Resolved]
  - Somnolence [Not Recovered/Not Resolved]
